FAERS Safety Report 4388224-3 (Version None)
Quarter: 2004Q2

REPORT INFORMATION
  Report Type: 
  Country: None (occurrence: None)
  Receive Date: 20040625
  Receipt Date: 20040622
  Transmission Date: 20050107
  Serious: Yes (Disabling)
  Sender: FDA-Public Use
  Company Number: TPA2004A00708

PATIENT
  Age: 48 Year
  Sex: Male
  Weight: 77.1115 kg

DRUGS (2)
  1. ACTOS [Suspect]
     Indication: DIABETES MELLITUS NON-INSULIN-DEPENDENT
     Dosage: 45 MG, 1 IN 1 D, PER ORAL
     Route: 048
     Dates: start: 20020603, end: 20040603
  2. LORTAB [Concomitant]

REACTIONS (6)
  - BACK INJURY [None]
  - FALL [None]
  - HYPERHIDROSIS [None]
  - MALAISE [None]
  - MEDICATION ERROR [None]
  - STRESS SYMPTOMS [None]
